FAERS Safety Report 15558539 (Version 5)
Quarter: 2019Q2

REPORT INFORMATION
  Report Type: Report from Study
  Country: FI (occurrence: FI)
  Receive Date: 20181028
  Receipt Date: 20190426
  Transmission Date: 20190711
  Serious: Yes (Other)
  Sender: FDA-Public Use
  Company Number: FI-BIOGEN-2018BI00649835

PATIENT
  Sex: Female

DRUGS (2)
  1. TECFIDERA [Suspect]
     Active Substance: DIMETHYL FUMARATE
     Route: 048
     Dates: start: 201809
  2. TECFIDERA [Suspect]
     Active Substance: DIMETHYL FUMARATE
     Indication: MULTIPLE SCLEROSIS
     Dosage: MAINTENANCE DOSE
     Route: 050
     Dates: start: 201809

REACTIONS (18)
  - Diabetes mellitus [Unknown]
  - Tremor [Unknown]
  - Oral pain [Recovered/Resolved]
  - Hypoaesthesia [Unknown]
  - Irritability [Unknown]
  - Pupils unequal [Unknown]
  - Vitamin D abnormal [Unknown]
  - White blood cell count decreased [Unknown]
  - Pain [Unknown]
  - Intranasal hypoaesthesia [Unknown]
  - Depression [Unknown]
  - Memory impairment [Unknown]
  - Fatigue [Unknown]
  - Insomnia [Unknown]
  - Feeling abnormal [Unknown]
  - Dizziness [Unknown]
  - Dyspepsia [Recovered/Resolved]
  - Fluid intake reduced [Unknown]

NARRATIVE: CASE EVENT DATE: 20190104
